FAERS Safety Report 9956418 (Version 2)
Quarter: 2014Q1

REPORT INFORMATION
  Report Type: Spontaneous
  Country: PR (occurrence: PR)
  Receive Date: 20140304
  Receipt Date: 20140304
  Transmission Date: 20141002
  Serious: No
  Sender: FDA-Public Use
  Company Number: PR-ABBVIE-12P-131-1018319-00

PATIENT
  Age: 41 Year
  Sex: Male
  Weight: 61.29 kg

DRUGS (5)
  1. HUMIRA [Suspect]
     Indication: CROHN^S DISEASE
     Route: 058
     Dates: start: 201208, end: 201212
  2. HUMIRA [Suspect]
     Route: 058
     Dates: start: 201301
  3. PENTASA [Concomitant]
     Indication: GASTROINTESTINAL INFLAMMATION
     Route: 048
  4. UNKNOWN SUBLINGUAL MEDICATION [Concomitant]
     Indication: GASTROINTESTINAL PAIN
     Route: 060
  5. PROBIOTICS [Concomitant]
     Indication: PRODUCT USED FOR UNKNOWN INDICATION

REACTIONS (6)
  - Injection site bruising [Recovered/Resolved]
  - Injection site haemorrhage [Recovered/Resolved]
  - Injection site pain [Recovered/Resolved]
  - Nasopharyngitis [Recovered/Resolved]
  - Gastrointestinal pain [Not Recovered/Not Resolved]
  - Neck pain [Recovered/Resolved]
